FAERS Safety Report 20863059 (Version 3)
Quarter: 2023Q1

REPORT INFORMATION
  Report Type: Spontaneous
  Country: US (occurrence: US)
  Receive Date: 20220523
  Receipt Date: 20230111
  Transmission Date: 20230417
  Serious: No
  Sender: FDA-Public Use
  Company Number: US-PFIZER INC-202200150333

PATIENT
  Age: 76 Year
  Sex: Male
  Weight: 81.65 kg

DRUGS (2)
  1. VYNDAMAX [Suspect]
     Active Substance: TAFAMIDIS
     Indication: Amyloidosis
     Dosage: UNK, 1X/DAY (60 TABLETS )
     Dates: start: 2018
  2. VYNDAMAX [Suspect]
     Active Substance: TAFAMIDIS
     Indication: Amyloidosis senile
     Dosage: 61 MG

REACTIONS (4)
  - Hypoacusis [Unknown]
  - Fatigue [Unknown]
  - Condition aggravated [Unknown]
  - Arthropathy [Unknown]

NARRATIVE: CASE EVENT DATE: 20180101
